FAERS Safety Report 8239092-0 (Version None)
Quarter: 2012Q1

REPORT INFORMATION
  Report Type: 
  Country: None (occurrence: None)
  Receive Date: 20120327
  Receipt Date: 20120314
  Transmission Date: 20120608
  Serious: Yes (Other)
  Sender: FDA-Public Use
  Company Number: GB-ELI_LILLY_AND_COMPANY-GB201203005674

PATIENT
  Sex: Female

DRUGS (2)
  1. ZYPREXA [Suspect]
     Indication: SCHIZOAFFECTIVE DISORDER
     Dosage: 10 MG, QD
     Route: 064
     Dates: start: 20070510
  2. ZYPREXA [Suspect]
     Dosage: 7.5 MG, QD
     Route: 064

REACTIONS (3)
  - HYPERNATRAEMIA [None]
  - DEHYDRATION [None]
  - FOETAL EXPOSURE DURING PREGNANCY [None]
